FAERS Safety Report 7544450-3 (Version None)
Quarter: 2011Q2

REPORT INFORMATION
  Report Type: 
  Country: None (occurrence: None)
  Receive Date: 20110613
  Receipt Date: 20091130
  Transmission Date: 20111010
  Serious: Yes (Death, Other)
  Sender: FDA-Public Use
  Company Number: PHHY2009JP52826

PATIENT
  Sex: Female

DRUGS (11)
  1. PERSANTIN [Concomitant]
     Indication: MYOCARDIAL INFARCTION
     Dosage: 50 MG, UNK
     Route: 048
     Dates: start: 20081022, end: 20081219
  2. ISOPIT [Concomitant]
     Indication: MYOCARDIAL INFARCTION
     Dosage: 1 DF, UNK
     Route: 062
     Dates: start: 20081022, end: 20081216
  3. EXJADE [Suspect]
     Dosage: 375 MG, DAILY
     Route: 048
     Dates: start: 20081210, end: 20081217
  4. DEKASOFT [Concomitant]
     Indication: MYOCARDIAL INFARCTION
     Dosage: 30 MG, UNK
     Route: 048
     Dates: start: 20081022, end: 20081216
  5. CANDESARTAN CILEXETIL [Concomitant]
     Indication: MYOCARDIAL INFARCTION
     Dosage: 8 MG, UNK
     Route: 048
     Dates: start: 20081022, end: 20081216
  6. EXJADE [Suspect]
     Indication: IRON OVERLOAD
     Dosage: 500 MG, DAILY
     Route: 048
     Dates: start: 20081022, end: 20081209
  7. SEPAMIT [Concomitant]
     Indication: MYOCARDIAL INFARCTION
     Dosage: 20 MG, UNK
     Route: 048
     Dates: start: 20081022, end: 20081216
  8. PRIMOBOLAN [Concomitant]
     Dosage: 15 MG, UNK
     Route: 048
     Dates: start: 20081022, end: 20081219
  9. DIGOSIN [Concomitant]
     Indication: MYOCARDIAL INFARCTION
     Dosage: 0.125 MG, UNK
     Route: 048
     Dates: start: 20081022, end: 20081219
  10. LASIX [Concomitant]
     Indication: MYOCARDIAL INFARCTION
     Dosage: 20 MG, UNK
     Route: 048
     Dates: start: 20081022, end: 20081216
  11. ARGAMATE [Concomitant]
     Indication: MYOCARDIAL INFARCTION
     Dosage: 25 G, UNK
     Route: 048
     Dates: start: 20081022, end: 20081216

REACTIONS (2)
  - DISEASE PROGRESSION [None]
  - DISSEMINATED INTRAVASCULAR COAGULATION [None]
